FAERS Safety Report 23454475 (Version 1)
Quarter: 2024Q1

REPORT INFORMATION
  Report Type: Report from Study
  Country: US (occurrence: US)
  Receive Date: 20240130
  Receipt Date: 20240130
  Transmission Date: 20240410
  Serious: Yes (Hospitalization)
  Sender: FDA-Public Use
  Company Number: US-JAZZ PHARMACEUTICALS-2024-US-001473

PATIENT
  Sex: Female

DRUGS (1)
  1. EPIDIOLEX [Suspect]
     Active Substance: CANNABIDIOL
     Indication: Lennox-Gastaut syndrome
     Dosage: 3 MILLILITER, BID
     Route: 048
     Dates: start: 202108

REACTIONS (2)
  - Hospitalisation [Not Recovered/Not Resolved]
  - Intentional dose omission [Unknown]
